APPROVED DRUG PRODUCT: OXYCODONE AND ACETAMINOPHEN
Active Ingredient: ACETAMINOPHEN; OXYCODONE HYDROCHLORIDE
Strength: 325MG;10MG
Dosage Form/Route: TABLET;ORAL
Application: A090535 | Product #004
Applicant: SUN PHARMACEUTICAL INDUSTRIES INC
Approved: Dec 26, 2013 | RLD: No | RS: No | Type: DISCN